FAERS Safety Report 14328557 (Version 3)
Quarter: 2020Q1

REPORT INFORMATION
  Report Type: Report from Study
  Country: CO (occurrence: CO)
  Receive Date: 20171227
  Receipt Date: 20200226
  Transmission Date: 20200409
  Serious: Yes (Death, Hospitalization)
  Sender: FDA-Public Use
  Company Number: CO-JNJFOC-20171126751

PATIENT
  Sex: Male
  Weight: 61 kg

DRUGS (4)
  1. ZYTIGA [Suspect]
     Active Substance: ABIRATERONE ACETATE
     Route: 048
     Dates: start: 20160929, end: 20180122
  2. PREDNISOLONE. [Concomitant]
     Active Substance: PREDNISOLONE
     Indication: PROSTATE CANCER
     Route: 048
     Dates: start: 20160929, end: 20171216
  3. PREDNISOLONE. [Concomitant]
     Active Substance: PREDNISOLONE
     Route: 048
     Dates: start: 20160929, end: 20180122
  4. ZYTIGA [Suspect]
     Active Substance: ABIRATERONE ACETATE
     Indication: PROSTATE CANCER METASTATIC
     Route: 048
     Dates: start: 20160929, end: 20171216

REACTIONS (5)
  - Thrombosis [Not Recovered/Not Resolved]
  - Renal haemorrhage [Unknown]
  - Bladder obstruction [Recovering/Resolving]
  - Prostatitis [Recovering/Resolving]
  - Metastatic neoplasm [Fatal]

NARRATIVE: CASE EVENT DATE: 2017
